FAERS Safety Report 9788576 (Version 1)
Quarter: 2013Q4

REPORT INFORMATION
  Report Type: Spontaneous
  Country: US (occurrence: US)
  Receive Date: 20131230
  Receipt Date: 20131230
  Transmission Date: 20140711
  Serious: Yes (Hospitalization)
  Sender: FDA-Public Use
  Company Number: US-ELI_LILLY_AND_COMPANY-US201312006713

PATIENT
  Sex: Female

DRUGS (12)
  1. HUMALOG 25% LISPRO, 75% NPL [Suspect]
     Indication: TYPE 2 DIABETES MELLITUS
     Dosage: UNK
     Route: 065
     Dates: end: 2013
  2. HUMALOG 25% LISPRO, 75% NPL [Suspect]
     Dosage: UNK
     Route: 065
     Dates: end: 2013
  3. HUMALOG 50% LISPRO, 50% NPL [Suspect]
     Indication: TYPE 2 DIABETES MELLITUS
     Dosage: UNK UNK, TID
     Route: 065
     Dates: start: 2013
  4. LEXAPRO [Concomitant]
     Dosage: 20 MG, QD
  5. CLONAZEPAM [Concomitant]
     Dosage: 1 MG, QD
  6. ATACAND [Concomitant]
     Dosage: 16 MG, QD
  7. ASPIRIN [Concomitant]
     Dosage: 325 MG, QD
  8. ATENOLOL [Concomitant]
     Dosage: 50 MG, UNKNOWN
  9. NITROGLYCERIN [Concomitant]
     Route: 062
  10. TYLENOL                            /00020001/ [Concomitant]
     Indication: BACK PAIN
     Route: 065
  11. VENTOLIN HFA [Concomitant]
     Dosage: 2 DF, BID
  12. LIDOCAINE [Concomitant]
     Dosage: 2 DF, QD
     Route: 061

REACTIONS (10)
  - Anxiety [Unknown]
  - Chest pain [Unknown]
  - Neck pain [Unknown]
  - Vomiting [Unknown]
  - Feeling abnormal [Unknown]
  - Blood glucose increased [Unknown]
  - Visual impairment [Unknown]
  - Feeling abnormal [Unknown]
  - Product tampering [Unknown]
  - Incorrect product storage [Unknown]
